FAERS Safety Report 21898772 (Version 2)
Quarter: 2023Q1

REPORT INFORMATION
  Report Type: Report from Study
  Country: US (occurrence: US)
  Receive Date: 20230123
  Receipt Date: 20230206
  Transmission Date: 20230418
  Serious: Yes (Death, Hospitalization, Other)
  Sender: FDA-Public Use
  Company Number: US-BIOVITRUM-2022US15794

PATIENT
  Sex: Female

DRUGS (2)
  1. KINERET [Suspect]
     Active Substance: ANAKINRA
     Indication: Rheumatoid arthritis
     Dates: start: 20191210
  2. KINERET [Suspect]
     Active Substance: ANAKINRA
     Dates: start: 20191210

REACTIONS (2)
  - Cardiac arrest [Fatal]
  - COVID-19 [Unknown]
